FAERS Safety Report 16021193 (Version 4)
Quarter: 2019Q2

REPORT INFORMATION
  Report Type: Spontaneous
  Country: US (occurrence: US)
  Receive Date: 20190301
  Receipt Date: 20190410
  Transmission Date: 20190711
  Serious: Yes (Other)
  Sender: FDA-Public Use
  Company Number: NL-APOTEX-2019AP008698

PATIENT
  Sex: Male

DRUGS (3)
  1. PAXIL [Suspect]
     Active Substance: PAROXETINE HYDROCHLORIDE
     Indication: PRODUCT USED FOR UNKNOWN INDICATION
     Dosage: 40 MG, QD
     Route: 065
     Dates: start: 2003
  2. RITALIN [Concomitant]
     Active Substance: METHYLPHENIDATE HYDROCHLORIDE
     Indication: PRODUCT USED FOR UNKNOWN INDICATION
     Dosage: UNK
     Route: 065
  3. PAXIL [Suspect]
     Active Substance: PAROXETINE HYDROCHLORIDE
     Dosage: 30 MG, UNK
     Route: 065

REACTIONS (9)
  - Dizziness [Unknown]
  - Ill-defined disorder [Unknown]
  - Quality of life decreased [Unknown]
  - Mood swings [Unknown]
  - Nausea [Unknown]
  - Vertigo [Unknown]
  - Drug dependence [Unknown]
  - Feeling abnormal [Unknown]
  - Withdrawal syndrome [Not Recovered/Not Resolved]
